FAERS Safety Report 9500687 (Version 2)
Quarter: 2013Q3

REPORT INFORMATION
  Report Type: Spontaneous
  Country: CN (occurrence: CN)
  Receive Date: 20130905
  Receipt Date: 20130917
  Transmission Date: 20140515
  Serious: Yes (Hospitalization)
  Sender: FDA-Public Use
  Company Number: CN-MERCK-1309CHN001804

PATIENT
  Age: 67 Year
  Sex: Male

DRUGS (2)
  1. IMIPENEM (+) CILASTATIN SODIUM [Suspect]
     Indication: ANTIBIOTIC THERAPY
     Dosage: 1 G, BID
     Route: 041
     Dates: start: 20120626, end: 20120705
  2. CASPOFUNGIN ACETATE [Suspect]
     Indication: ANTIBIOTIC THERAPY
     Dosage: 50 MG, QD
     Route: 041
     Dates: start: 20120705, end: 20120710

REACTIONS (1)
  - Neutrophil count decreased [Recovered/Resolved]
